FAERS Safety Report 7971421-5 (Version None)
Quarter: 2011Q4

REPORT INFORMATION
  Report Type: 
  Country: None (occurrence: None)
  Receive Date: 20111212
  Receipt Date: 20111207
  Transmission Date: 20120403
  Serious: Yes (Death, Hospitalization)
  Sender: FDA-Public Use
  Company Number: BR-ASTRAZENECA-2011SE69698

PATIENT
  Age: 62 Year
  Sex: Female

DRUGS (6)
  1. ENOXAPARIN SODIUM [Suspect]
     Dosage: DOSE INCREASED
     Route: 042
  2. ENOXAPARIN SODIUM [Suspect]
     Dosage: DOSE REDUCED
     Route: 042
  3. PLAVIX [Concomitant]
  4. BRILINTA [Suspect]
     Indication: ACUTE CORONARY SYNDROME
     Route: 048
  5. ENOXAPARIN SODIUM [Suspect]
     Route: 042
  6. ASPIRIN [Concomitant]

REACTIONS (6)
  - BRAIN DEATH [None]
  - ANXIETY [None]
  - ANGINA PECTORIS [None]
  - MALAISE [None]
  - HAEMORRHAGIC STROKE [None]
  - CHEST DISCOMFORT [None]
